FAERS Safety Report 16848227 (Version 4)
Quarter: 2019Q4

REPORT INFORMATION
  Report Type: Report from Study
  Country: US (occurrence: US)
  Receive Date: 20190925
  Receipt Date: 20191206
  Transmission Date: 20200122
  Serious: Yes (Death, Hospitalization)
  Sender: FDA-Public Use
  Company Number: US-ROCHE-2410701

PATIENT
  Age: 74 Year
  Sex: Male
  Weight: 64.1 kg

DRUGS (12)
  1. CABOZANTINIB [Suspect]
     Active Substance: CABOZANTINIB
     Indication: HEAD AND NECK CANCER
     Dosage: MOST RECENT DOSE OF CABOZANTINIB: 04/SEP/2019?ON 09/OCT/2019, HE RECEIVED THE MOST RECENT DOSE OF CA
     Route: 048
     Dates: start: 20190809
  2. CABOZANTINIB [Suspect]
     Active Substance: CABOZANTINIB
     Route: 048
  3. TRENTAL [Concomitant]
     Active Substance: PENTOXIFYLLINE
  4. ATEZOLIZUMAB. [Suspect]
     Active Substance: ATEZOLIZUMAB
     Indication: HEAD AND NECK CANCER
     Dosage: MOST RECENT DOSE OF ATEZOLIZUMAB: 28/AUG/2019,
     Route: 042
     Dates: start: 20190809
  5. ACETAMINOPHEN. [Concomitant]
     Active Substance: ACETAMINOPHEN
  6. FENTANYL. [Concomitant]
     Active Substance: FENTANYL
  7. SYNTHROID [Concomitant]
     Active Substance: LEVOTHYROXINE SODIUM
  8. ZYRTEC [Concomitant]
     Active Substance: CETIRIZINE HYDROCHLORIDE
  9. ATARAX [Concomitant]
     Active Substance: HYDROXYZINE HYDROCHLORIDE
  10. COZAAR [Concomitant]
     Active Substance: LOSARTAN POTASSIUM
  11. HYDROMORPHONE [Concomitant]
     Active Substance: HYDROMORPHONE
  12. CABOZANTINIB [Suspect]
     Active Substance: CABOZANTINIB
     Route: 048

REACTIONS (3)
  - Sinus node dysfunction [Not Recovered/Not Resolved]
  - Syncope [Not Recovered/Not Resolved]
  - Death [Fatal]

NARRATIVE: CASE EVENT DATE: 20190904
